FAERS Safety Report 12206204 (Version 5)
Quarter: 2017Q1

REPORT INFORMATION
  Report Type: Report from Study
  Country: AU (occurrence: AU)
  Receive Date: 20160324
  Receipt Date: 20170113
  Transmission Date: 20170428
  Serious: Yes (Hospitalization, Other)
  Sender: FDA-Public Use
  Company Number: AU-ROCHE-1730920

PATIENT
  Age: 68 Year
  Sex: Female

DRUGS (20)
  1. BACTROBAN [Concomitant]
     Active Substance: MUPIROCIN\MUPIROCIN CALCIUM
     Dosage: APPLY BD FOR 10 DAYS
     Route: 065
  2. OTODEX [Concomitant]
     Dosage: INSTIL 2 TO 3 DROPS INTO EAR 3 TO 4 TIMES DAILY
     Route: 065
  3. SANDRENA [Concomitant]
     Active Substance: ESTRADIOL
     Dosage: 0.1 PERCENT SACHET
     Route: 065
  4. ACTEMRA [Suspect]
     Active Substance: TOCILIZUMAB
     Dosage: 80MG/4 ML CONCENTRATE FOR INFUSION AS DIRECTED
     Route: 042
  5. SPIRIVA [Concomitant]
     Active Substance: TIOTROPIUM BROMIDE MONOHYDRATE
     Route: 065
  6. OTOCOMB OTIC [Concomitant]
     Route: 065
  7. DITROPAN [Concomitant]
     Active Substance: OXYBUTYNIN CHLORIDE
     Route: 065
  8. PANAFCORT [Concomitant]
     Active Substance: PREDNISONE
     Dosage: 2 TABLETS IN THE MORNING WITH MEALS, FOR 2WEEKS; DECREASE TO 1.5 OD AFTERWARDS FOR 1 WEEK AND THEN 1
     Route: 065
  9. PLAQUENIL [Concomitant]
     Active Substance: HYDROXYCHLOROQUINE SULFATE
     Dosage: 2 TABLETS IN THE MORNING
     Route: 065
  10. MEGAFOL [Concomitant]
     Active Substance: FOLIC ACID
     Route: 065
  11. SYMBICORT [Concomitant]
     Active Substance: BUDESONIDE\FORMOTEROL FUMARATE DIHYDRATE
     Dosage: 200 PER 6 200MCG 6MCG PER DOE TURBUHALER 2 PUFFS TWICE A DAY
     Route: 065
  12. PRISTIQ EXTENDED-RELEASE [Concomitant]
     Active Substance: DESVENLAFAXINE SUCCINATE
     Dosage: 1 TABLET IN THE MORNING
     Route: 065
  13. ACTEMRA [Suspect]
     Active Substance: TOCILIZUMAB
     Indication: RHEUMATOID ARTHRITIS
     Route: 042
     Dates: start: 20110805
  14. FLAMAZINE [Concomitant]
     Active Substance: SILVER SULFADIAZINE
     Dosage: 1 PERCENT 0.2 PERCENT G CREAM  APPLY DAILY AS DIRECTED
     Route: 065
  15. PANAFCORT [Concomitant]
     Active Substance: PREDNISONE
     Dosage: 2 TABLETS IN THE MORNING
     Route: 065
  16. PARIET [Concomitant]
     Active Substance: RABEPRAZOLE SODIUM
     Dosage: 1 TABLET IN THE MORNING
     Route: 065
  17. ZYLOPRIM [Concomitant]
     Active Substance: ALLOPURINOL
     Dosage: 2 TABLETS IN THE MORNING
     Route: 065
  18. ARAVA [Concomitant]
     Active Substance: LEFLUNOMIDE
     Dosage: 1 TABLET IN THE MORNING
     Route: 065
  19. HYDROCORTISONE. [Concomitant]
     Active Substance: HYDROCORTISONE
     Dosage: APPLY TO TREATMENT AREA THE NIGHT BEFORE
     Route: 065
  20. SIGUENT HYCOR [Concomitant]
     Dosage: EYE OINTMENT APPLY THINLY BD FOR UP TO 2 WEEKS
     Route: 065

REACTIONS (7)
  - Road traffic accident [Unknown]
  - Rib fracture [Recovering/Resolving]
  - Urinary tract infection [Recovered/Resolved]
  - Urinary tract infection [Recovered/Resolved]
  - Contusion [Recovered/Resolved]
  - Sternal fracture [Recovering/Resolving]
  - Fall [Unknown]

NARRATIVE: CASE EVENT DATE: 20160311
